FAERS Safety Report 20854872 (Version 1)
Quarter: 2022Q2

REPORT INFORMATION
  Report Type: Spontaneous
  Country: US (occurrence: None)
  Receive Date: 20220519
  Receipt Date: 20220519
  Transmission Date: 20220721
  Serious: Yes (Disabling, Other)
  Sender: FDA-Public Use
  Company Number: None

PATIENT
  Age: 58 Year
  Sex: Female
  Weight: 68.04 kg

DRUGS (14)
  1. ALBUTEROL [Suspect]
     Active Substance: ALBUTEROL
     Indication: Multiple allergies
     Route: 048
     Dates: start: 20100310, end: 20220429
  2. PULMICORT FLEXHALER [Concomitant]
  3. IBUPROFEN [Concomitant]
     Active Substance: IBUPROFEN
  4. MELOXICAM [Concomitant]
  5. ALBUTERAL [Concomitant]
  6. OMEPRAZOLE [Concomitant]
     Active Substance: OMEPRAZOLE
  7. COSTO^S KIRKLAND BRAND ALLER-FLO NASAL SPRAY [Concomitant]
  8. COSTCO^S ALLERGY ALLER-FEX ANTI-HISTAMINE [Concomitant]
  9. ASPIRIN [Concomitant]
     Active Substance: ASPIRIN
  10. META-MUCIL FIBER SUPPLEMENT [Concomitant]
  11. ANTI-NAUSEA LIQUID [Concomitant]
  12. DRAMAMINE [Concomitant]
     Active Substance: DIMENHYDRINATE
  13. DR TEALS LAVENDAR + EPSOM SALTS [Concomitant]
  14. TUCKS [Concomitant]

REACTIONS (5)
  - Headache [None]
  - Stress [None]
  - Dyspnoea [None]
  - Wheezing [None]
  - Hypersensitivity [None]
